FAERS Safety Report 9496817 (Version 1)
Quarter: 2013Q3

REPORT INFORMATION
  Report Type: Spontaneous
  Country: US (occurrence: None)
  Receive Date: 20130903
  Receipt Date: 20130903
  Transmission Date: 20140515
  Serious: Yes (Other)
  Sender: FDA-Public Use
  Company Number: None

PATIENT
  Age: 70 Year
  Sex: Female
  Weight: 63.5 kg

DRUGS (3)
  1. LATISSE [Suspect]
     Indication: MADAROSIS
     Dosage: ONE TIME PER DAY ONCE ADILY APPLIED TO A SUFACE, USUALLY THE SKIN
     Route: 061
     Dates: start: 20130201, end: 20130814
  2. ESTROGEN PATCH [Concomitant]
  3. TYLENOL [Concomitant]

REACTIONS (1)
  - Retinal tear [None]
